FAERS Safety Report 15732520 (Version 1)
Quarter: 2018Q4

REPORT INFORMATION
  Report Type: Spontaneous
  Country: US (occurrence: US)
  Receive Date: 20181217
  Receipt Date: 20181217
  Transmission Date: 20190205
  Serious: Yes (Hospitalization)
  Sender: FDA-Public Use
  Company Number: None

PATIENT
  Age: 51 Year
  Sex: Female

DRUGS (1)
  1. LISINOPRIL. [Suspect]
     Active Substance: LISINOPRIL

REACTIONS (7)
  - Hypersensitivity [None]
  - Dysphagia [None]
  - Dysphonia [None]
  - Vomiting [None]
  - Nausea [None]
  - Mouth swelling [None]
  - Macroglossia [None]

NARRATIVE: CASE EVENT DATE: 20181021
